FAERS Safety Report 8794059 (Version 2)
Quarter: 2012Q4

REPORT INFORMATION
  Report Type: 
  Country: US (occurrence: US)
  Receive Date: 20120918
  Receipt Date: 20121214
  Transmission Date: 20130627
  Serious: No
  Sender: FDA-Public Use
  Company Number: US-BIOGENIDEC-2012BI037066

PATIENT
  Age: 46 Year
  Sex: Female

DRUGS (2)
  1. TYSABRI [Suspect]
     Indication: MULTIPLE SCLEROSIS
     Route: 042
     Dates: start: 20110127, end: 20120412
  2. TYSABRI [Suspect]
     Indication: MULTIPLE SCLEROSIS
     Route: 042
     Dates: start: 20120511

REACTIONS (11)
  - Memory impairment [Not Recovered/Not Resolved]
  - General symptom [Not Recovered/Not Resolved]
  - Personality change [Not Recovered/Not Resolved]
  - Stress [Not Recovered/Not Resolved]
  - Hypoaesthesia [Not Recovered/Not Resolved]
  - Gait disturbance [Not Recovered/Not Resolved]
  - Central nervous system lesion [Not Recovered/Not Resolved]
  - Frustration [Not Recovered/Not Resolved]
  - Paralysis [Not Recovered/Not Resolved]
  - Muscle spasms [Not Recovered/Not Resolved]
  - Peroneal nerve palsy [Not Recovered/Not Resolved]
